FAERS Safety Report 9479027 (Version 1)
Quarter: 2013Q3

REPORT INFORMATION
  Report Type: Spontaneous
  Country: US (occurrence: US)
  Receive Date: 20130827
  Receipt Date: 20130827
  Transmission Date: 20140515
  Serious: No
  Sender: FDA-Public Use
  Company Number: US-BAYER-2013-103472

PATIENT
  Age: 72 Year
  Sex: Female
  Weight: 204.8 kg

DRUGS (2)
  1. ALEVE CAPLET [Suspect]
     Indication: ARTHRITIS
     Dosage: 4 DF, QD
     Route: 048
     Dates: start: 201305
  2. COUMADIN [Concomitant]

REACTIONS (2)
  - Extra dose administered [None]
  - Incorrect drug administration duration [None]
